FAERS Safety Report 16337203 (Version 3)
Quarter: 2020Q3

REPORT INFORMATION
  Report Type: Spontaneous
  Country: US (occurrence: US)
  Receive Date: 20190521
  Receipt Date: 20200908
  Transmission Date: 20201102
  Serious: Yes (Other)
  Sender: FDA-Public Use
  Company Number: US-ELI_LILLY_AND_COMPANY-US201905007784

PATIENT
  Age: 72 Year
  Sex: Male

DRUGS (2)
  1. BASAGLAR [Suspect]
     Active Substance: INSULIN GLARGINE
     Dosage: 100 U, EACH EVENING
     Route: 065
  2. BASAGLAR [Suspect]
     Active Substance: INSULIN GLARGINE
     Indication: TYPE 2 DIABETES MELLITUS
     Dosage: 100 U, EACH EVENING
     Route: 065
     Dates: start: 20170101

REACTIONS (1)
  - Small intestine carcinoma [Not Recovered/Not Resolved]

NARRATIVE: CASE EVENT DATE: 20190401
